FAERS Safety Report 9908006 (Version 2)
Quarter: 2014Q1

REPORT INFORMATION
  Report Type: Spontaneous
  Country: FR (occurrence: FR)
  Receive Date: 20140219
  Receipt Date: 20140319
  Transmission Date: 20141002
  Serious: Yes (Hospitalization, Other)
  Sender: FDA-Public Use
  Company Number: FR-ASTRAZENECA-2014SE10839

PATIENT
  Age: 23187 Day
  Sex: Female
  Weight: 97 kg

DRUGS (6)
  1. CRESTOR [Suspect]
     Indication: HYPERCHOLESTEROLAEMIA
     Route: 048
     Dates: start: 201107, end: 201308
  2. AVLOCARDYL SR [Concomitant]
  3. ZOMIGORO [Concomitant]
     Indication: MIGRAINE
  4. LEVOTHYROX [Concomitant]
     Indication: THYROID NEOPLASM
  5. LYSANXIA [Concomitant]
     Indication: ANXIETY
  6. STILNOX [Concomitant]
     Indication: INSOMNIA

REACTIONS (2)
  - Tendonitis [Recovering/Resolving]
  - Fall [Recovering/Resolving]
